FAERS Safety Report 8107546 (Version 7)
Quarter: 2014Q1

REPORT INFORMATION
  Report Type: Spontaneous
  Country: US (occurrence: US)
  Receive Date: 20110825
  Receipt Date: 20140124
  Transmission Date: 20141002
  Serious: Yes (Hospitalization, Disabling, Other)
  Sender: FDA-Public Use
  Company Number: US-MERCK-1108USA03121

PATIENT
  Sex: Female
  Weight: 74.39 kg

DRUGS (4)
  1. FOSAMAX [Suspect]
     Indication: OSTEOPOROSIS PROPHYLAXIS
     Dosage: 70 MG, QW
     Route: 048
     Dates: start: 20010612, end: 20061110
  2. FOSAMAX PLUS D [Suspect]
     Indication: OSTEOPOROSIS PROPHYLAXIS
     Dosage: 70 MG, UNK
     Route: 048
     Dates: start: 20061110, end: 20080818
  3. MK-9356 [Concomitant]
     Dosage: 2.5 MG, UNK
     Dates: start: 20000228
  4. ACTONEL [Suspect]

REACTIONS (35)
  - Femur fracture [Not Recovered/Not Resolved]
  - Femur fracture [Not Recovered/Not Resolved]
  - Femur fracture [Unknown]
  - Skeletal injury [Unknown]
  - Limb operation [Unknown]
  - Limb asymmetry [Unknown]
  - Nephrolithiasis [Unknown]
  - Increased tendency to bruise [Unknown]
  - Respiratory disorder [Unknown]
  - Osteopenia [Unknown]
  - Bunion [Unknown]
  - Musculoskeletal disorder [Unknown]
  - Trigger finger [Unknown]
  - Fluid retention [Unknown]
  - Blood potassium decreased [Unknown]
  - Bone disorder [Unknown]
  - Post procedural haemorrhage [Recovering/Resolving]
  - Anaemia postoperative [Recovering/Resolving]
  - Hypoalbuminaemia [Unknown]
  - Wound complication [Unknown]
  - Ecchymosis [Unknown]
  - Pain [Unknown]
  - Bone disorder [Unknown]
  - Hypertension [Unknown]
  - Cholelithiasis [Unknown]
  - Osteoporosis [Unknown]
  - Adhesion [Unknown]
  - Myositis ossificans [Unknown]
  - Joint effusion [Unknown]
  - Osteoarthritis [Unknown]
  - Pulmonary arterial hypertension [Unknown]
  - Oedema [Unknown]
  - Bunion [Unknown]
  - Foot deformity [Unknown]
  - Hypocalcaemia [Unknown]
